FAERS Safety Report 23672219 (Version 2)
Quarter: 2024Q3

REPORT INFORMATION
  Report Type: Report from Study
  Country: FR (occurrence: FR)
  Receive Date: 20240326
  Receipt Date: 20240729
  Transmission Date: 20241017
  Serious: Yes (Hospitalization, Other)
  Sender: NOVARTIS
  Company Number: FR-002147023-NVSC2024FR063428

PATIENT
  Age: 78 Year
  Sex: Male
  Weight: 69 kg

DRUGS (1)
  1. PLUVICTO [Suspect]
     Active Substance: LUTETIUM LU-177 VIPIVOTIDE TETRAXETAN
     Indication: Prostate cancer
     Dosage: 7206 MBQ (ONCE (1ST CYCLE))
     Route: 042
     Dates: start: 20240125, end: 20240125

REACTIONS (6)
  - Vascular compression [Not Recovered/Not Resolved]
  - Thrombocytopenia [Unknown]
  - Hyperbilirubinaemia [Unknown]
  - General physical health deterioration [Not Recovered/Not Resolved]
  - Abdominal lymphadenopathy [Not Recovered/Not Resolved]
  - Disease progression [Not Recovered/Not Resolved]

NARRATIVE: CASE EVENT DATE: 20240222
